FAERS Safety Report 19104999 (Version 1)
Quarter: 2021Q2

REPORT INFORMATION
  Report Type: Spontaneous
  Country: DE (occurrence: DE)
  Receive Date: 20210408
  Receipt Date: 20210408
  Transmission Date: 20210717
  Serious: Yes (Hospitalization, Other)
  Sender: FDA-Public Use
  Company Number: DE-AUROBINDO-AUR-APL-2021-014182

PATIENT
  Age: 42 Year
  Sex: Male
  Weight: 94 kg

DRUGS (33)
  1. CYTARABINE. [Suspect]
     Active Substance: CYTARABINE
     Indication: ACUTE MYELOID LEUKAEMIA
     Dosage: 100 MG/M2 (INDUCTION, DAILY BY CONTINUOUS INFUSION)
     Route: 041
     Dates: start: 20191126
  2. LOPERAMIDE HYDROCHLORIDE. [Concomitant]
     Active Substance: LOPERAMIDE HYDROCHLORIDE
     Indication: DIARRHOEA
     Dosage: UNK
     Route: 065
     Dates: start: 20191130, end: 20191130
  3. SILICON DIOXIDE, COLLOIDAL [Concomitant]
     Active Substance: SILICON DIOXIDE
     Indication: DIARRHOEA
     Dosage: UNK (ONGOING)
     Route: 065
     Dates: start: 20191127
  4. DIMETINDENE MALEATE [Concomitant]
     Active Substance: DIMETHINDENE MALEATE
     Dosage: UNK
     Route: 065
     Dates: start: 20191203, end: 20191203
  5. METAMIZOLE SODIUM [Concomitant]
     Active Substance: METAMIZOLE SODIUM
     Indication: PYREXIA
     Dosage: UNK (ONGOING)
     Route: 065
     Dates: start: 20191120
  6. CLARITHROMYCIN. [Concomitant]
     Active Substance: CLARITHROMYCIN
     Indication: SEPSIS
     Dosage: UNK
     Route: 065
     Dates: start: 20191207, end: 20191209
  7. MORPHINE SULFATE. [Concomitant]
     Active Substance: MORPHINE SULFATE
     Dosage: UNK (ONGOING)
     Route: 065
     Dates: start: 20191204
  8. DOXYLAMINE SUCCINATE;FOLIC ACID;PYRIDOXINE [Concomitant]
     Indication: NAUSEA
     Dosage: UNK
     Route: 065
     Dates: start: 20191128, end: 20191128
  9. PARACETAMOL [Suspect]
     Active Substance: ACETAMINOPHEN
     Indication: PYREXIA
     Dosage: 2 GRAM, TWO TIMES A DAY (ONGOING)
     Route: 042
     Dates: start: 20191127
  10. DAUNORUBICIN HYDROCHLORIDE. [Suspect]
     Active Substance: DAUNORUBICIN HYDROCHLORIDE
     Indication: ACUTE MYELOID LEUKAEMIA
     Dosage: 60 MG/M2 (DAILY BY CONTINUOUS INFUSION)
     Route: 041
     Dates: start: 20191126
  11. METAMIZOLE SODIUM [Concomitant]
     Active Substance: METAMIZOLE SODIUM
     Indication: PAIN
     Dosage: UNK
     Route: 065
  12. IPRATROPIUM BROMIDE. [Concomitant]
     Active Substance: IPRATROPIUM BROMIDE
     Indication: DYSPNOEA
     Dosage: UNK
     Route: 065
     Dates: start: 20191130, end: 20191204
  13. GRANISETRON HYDROCHLORIDE. [Concomitant]
     Active Substance: GRANISETRON HYDROCHLORIDE
     Indication: NAUSEA
     Dosage: UNK
     Route: 065
     Dates: start: 20191126, end: 20191130
  14. DEXPANTHENOL. [Concomitant]
     Active Substance: DEXPANTHENOL
     Indication: ORAL DISORDER
     Dosage: UNK (ONGOING)
     Route: 065
     Dates: start: 20191208
  15. POSACONAZOLE [Concomitant]
     Active Substance: POSACONAZOLE
     Indication: PROPHYLAXIS
     Dosage: UNK (ONGOING)
     Route: 065
     Dates: start: 20191129
  16. SULFAMETHOXAZOLE;TRIMETHOPRIM [Concomitant]
     Active Substance: SULFAMETHOXAZOLE\TRIMETHOPRIM
     Indication: ANTIBIOTIC PROPHYLAXIS
     Dosage: UNK (ONGOING)
     Route: 065
     Dates: start: 20191204
  17. VALACICLOVIR [Concomitant]
     Active Substance: VALACYCLOVIR HYDROCHLORIDE
     Indication: PROPHYLAXIS
     Dosage: UNK (ONGOING)
     Route: 065
     Dates: start: 20191204
  18. PANTOPRAZOLE SODIUM SESQUIHYDRATE [Concomitant]
     Active Substance: PANTOPRAZOLE SODIUM
     Indication: GASTRITIS
     Dosage: UNK
     Route: 065
     Dates: start: 20191126, end: 20191210
  19. SALVIA OFFICINALIS [Concomitant]
     Indication: ORAL DISORDER
     Dosage: UNK (ONGOING)
     Route: 065
     Dates: start: 20191126
  20. NORADRENALINE HYDROCHLORIDE [Concomitant]
     Active Substance: NOREPINEPHRINE HYDROCHLORIDE, (+/-)-
     Indication: SEPSIS
     Dosage: UNK
     Route: 065
     Dates: start: 20191202, end: 20191203
  21. POTASSIUM CHLORIDE. [Concomitant]
     Active Substance: POTASSIUM CHLORIDE
     Dosage: UNK
     Route: 065
     Dates: start: 20191130, end: 20191207
  22. AMPHOTERICIN B. [Concomitant]
     Active Substance: AMPHOTERICIN B
     Indication: PROPHYLAXIS
     Dosage: UNK
     Route: 065
     Dates: start: 20191126, end: 20191130
  23. PETHIDINE HYDROCHLORIDE [Concomitant]
     Active Substance: MEPERIDINE HYDROCHLORIDE
     Indication: SEPSIS
     Dosage: UNK
     Route: 065
     Dates: start: 20191203, end: 20191205
  24. MEROPENEM. [Suspect]
     Active Substance: MEROPENEM
     Indication: SEPSIS
     Dosage: 1 GRAM, ONCE A DAY (THRICE A DAY)
     Route: 042
     Dates: start: 20191201, end: 20191204
  25. CALCIUM CHLORIDE;SODIUM CHLORIDE;SODIUM PHOSPHATE DIBASIC;SODIUM PHOSP [Concomitant]
     Indication: ORAL DISORDER
     Dosage: UNK
     Route: 065
     Dates: start: 20191206, end: 20191206
  26. MORPHINE SULFATE. [Concomitant]
     Active Substance: MORPHINE SULFATE
     Indication: PAIN
     Dosage: UNK
     Route: 065
     Dates: start: 20191204, end: 20191211
  27. PIPERACILLIN AND TAZOBACTAM [Suspect]
     Active Substance: PIPERACILLIN SODIUM\TAZOBACTAM SODIUM
     Indication: C-REACTIVE PROTEIN INCREASED
     Dosage: 4.5 GRAM, ONCE A DAY
     Route: 042
     Dates: start: 20191116, end: 20191211
  28. FUROSEMIDE. [Concomitant]
     Active Substance: FUROSEMIDE
     Indication: OEDEMA PERIPHERAL
     Dosage: UNK
     Route: 065
     Dates: start: 20191130, end: 20191209
  29. DIMETINDENE MALEATE [Concomitant]
     Active Substance: DIMETHINDENE MALEATE
     Indication: PRODUCT USED FOR UNKNOWN INDICATION
     Dosage: UNK
     Route: 065
     Dates: start: 20191203, end: 20191203
  30. MACROGOL 3350;POTASSIUM CHLORIDE;SODIUM BICARBONATE;SODIUM CHLORIDE [Concomitant]
     Active Substance: POLYETHYLENE GLYCOL 3350\POTASSIUM CHLORIDE\SODIUM BICARBONATE\SODIUM CHLORIDE
     Indication: CONSTIPATION PROPHYLAXIS
     Dosage: UNK
     Route: 065
     Dates: start: 20191204, end: 20191207
  31. POTASSIUM CHLORIDE. [Concomitant]
     Active Substance: POTASSIUM CHLORIDE
     Indication: HYPOKALAEMIA
     Dosage: UNK
     Route: 065
     Dates: start: 20191130, end: 20191204
  32. SALBUTAMOL SULFATE [Concomitant]
     Active Substance: ALBUTEROL SULFATE
     Indication: DYSPNOEA
     Dosage: UNK
     Route: 065
     Dates: start: 20191130, end: 20191204
  33. GRANISETRON [Concomitant]
     Active Substance: GRANISETRON
     Indication: NAUSEA
     Dosage: UNK
     Route: 065
     Dates: start: 20191128, end: 20191204

REACTIONS (1)
  - Drug-induced liver injury [Recovered/Resolved]

NARRATIVE: CASE EVENT DATE: 20191212
